FAERS Safety Report 7601770-1 (Version None)
Quarter: 2011Q3

REPORT INFORMATION
  Report Type: 
  Country: None (occurrence: None)
  Receive Date: 20110711
  Receipt Date: 20110702
  Transmission Date: 20111222
  Serious: Yes (Hospitalization)
  Sender: FDA-Public Use
  Company Number: IT-US-EMD SERONO, INC.-7051349

PATIENT
  Sex: Female

DRUGS (4)
  1. IDROCLOROTIAZIDE [Concomitant]
  2. REBIF [Suspect]
     Indication: MULTIPLE SCLEROSIS
     Route: 058
     Dates: start: 20041118, end: 20100301
  3. CARBAMAZEPINE [Suspect]
     Indication: PARAESTHESIA
     Route: 048
     Dates: start: 20061207, end: 20100712
  4. REBIF [Suspect]
     Route: 058
     Dates: start: 20100301, end: 20100712

REACTIONS (8)
  - DYSPNOEA [None]
  - PANCYTOPENIA [None]
  - PARAESTHESIA [None]
  - CHEST DISCOMFORT [None]
  - HYPONATRAEMIA [None]
  - HYPERTENSION [None]
  - BLOOD ELECTROLYTES DECREASED [None]
  - DYSAESTHESIA [None]
